FAERS Safety Report 5573009-2 (Version None)
Quarter: 2007Q4

REPORT INFORMATION
  Report Type: 
  Country: None (occurrence: None)
  Receive Date: 20071224
  Receipt Date: 20071213
  Transmission Date: 20080405
  Serious: Yes (Hospitalization)
  Sender: FDA-Public Use
  Company Number: US-JNJFOC-20071105599

PATIENT
  Sex: Female
  Weight: 137.44 kg

DRUGS (16)
  1. TRAMADOL HYDROCHLORIDE [Suspect]
     Route: 048
  2. TRAMADOL HYDROCHLORIDE [Suspect]
     Indication: OSTEOARTHRITIS
     Route: 048
  3. MELOXICAM [Suspect]
     Route: 048
  4. MELOXICAM [Suspect]
     Indication: OSTEOARTHRITIS
     Route: 048
  5. FUROSEMIDE [Concomitant]
     Indication: HYPERTENSION
     Route: 048
  6. CLONIDINE [Concomitant]
     Route: 048
  7. METFORMIN HCL [Concomitant]
     Indication: DIABETES MELLITUS
     Route: 048
  8. MICARDIS HCT [Concomitant]
     Indication: HYPERTENSION
     Route: 048
  9. PEPCID AC [Concomitant]
     Indication: GASTROOESOPHAGEAL REFLUX DISEASE
     Route: 048
  10. BENADRYL [Concomitant]
     Indication: RHINITIS SEASONAL
     Route: 048
  11. POTASSIUM CHLORIDE [Concomitant]
     Route: 048
  12. IRON [Concomitant]
     Route: 048
  13. VITAMIN B-12 [Concomitant]
     Route: 048
  14. ASCORBIC ACID [Concomitant]
     Route: 048
  15. PROCARDIA [Concomitant]
     Route: 065
  16. LEXAPRO [Concomitant]
     Route: 065

REACTIONS (1)
  - DYSPEPSIA [None]
